FAERS Safety Report 6260596-4 (Version None)
Quarter: 2009Q3

REPORT INFORMATION
  Report Type: 
  Country: None (occurrence: None)
  Receive Date: 20090708
  Receipt Date: 20090629
  Transmission Date: 20100115
  Serious: Yes (Hospitalization)
  Sender: FDA-Public Use
  Company Number: DE-SANOFI-SYNTHELABO-A01200904689

PATIENT
  Sex: Male

DRUGS (2)
  1. CISPLATIN/5FU [Concomitant]
     Indication: OESOPHAGEAL CARCINOMA
     Dosage: UNK
     Route: 065
     Dates: start: 20090302, end: 20090414
  2. ISCOVER [Suspect]
     Indication: CAROTID ARTERY OCCLUSION
     Route: 048
     Dates: start: 20090301, end: 20090401

REACTIONS (3)
  - BICYTOPENIA [None]
  - CAROTID ARTERY THROMBOSIS [None]
  - PANCYTOPENIA [None]
